FAERS Safety Report 7356868-2 (Version None)
Quarter: 2011Q1

REPORT INFORMATION
  Report Type: 
  Country: None (occurrence: None)
  Receive Date: 20110317
  Receipt Date: 20110309
  Transmission Date: 20110831
  Serious: No
  Sender: FDA-Public Use
  Company Number: US-BIOGENIDEC-2011BI008715

PATIENT
  Age: 65 Year
  Sex: Female

DRUGS (1)
  1. TYSABRI [Suspect]
     Indication: MULTIPLE SCLEROSIS
     Route: 042
     Dates: start: 20080114

REACTIONS (9)
  - SOMNOLENCE [None]
  - HEADACHE [None]
  - ALOPECIA [None]
  - DIZZINESS [None]
  - GAIT DISTURBANCE [None]
  - PRURITUS [None]
  - URINARY INCONTINENCE [None]
  - VISION BLURRED [None]
  - FATIGUE [None]
